FAERS Safety Report 18009438 (Version 1)
Quarter: 2020Q3

REPORT INFORMATION
  Report Type: Spontaneous
  Country: CA (occurrence: CA)
  Receive Date: 20200710
  Receipt Date: 20200710
  Transmission Date: 20201103
  Serious: Yes (Other)
  Sender: FDA-Public Use
  Company Number: CA-ASTRAZENECA-2020SE87120

PATIENT
  Sex: Female

DRUGS (5)
  1. ANASTROZOLE. [Suspect]
     Active Substance: ANASTROZOLE
     Indication: PRODUCT USED FOR UNKNOWN INDICATION
     Route: 048
  2. FULVESTRANT. [Suspect]
     Active Substance: FULVESTRANT
     Indication: BREAST CANCER FEMALE
     Dosage: 75.0MG UNKNOWN
     Route: 030
  3. LETROZOLE. [Concomitant]
     Active Substance: LETROZOLE
     Dosage: 75.0MG UNKNOWN
     Route: 065
  4. IBRANCE [Suspect]
     Active Substance: PALBOCICLIB
     Indication: BREAST CANCER FEMALE
     Dosage: 75.0MG UNKNOWN
     Route: 048
  5. XGEVA [Concomitant]
     Active Substance: DENOSUMAB
     Dosage: SINGLE?USE VIAL FOR SUBCUTANEOUS USE ONLY. PRESERVATIVE?FREE 75.0MG UNKNOWN
     Route: 065

REACTIONS (2)
  - Drug intolerance [Unknown]
  - Neoplasm progression [Unknown]
